FAERS Safety Report 8555597-7 (Version None)
Quarter: 2012Q3

REPORT INFORMATION
  Report Type: 
  Country: None (occurrence: None)
  Receive Date: 20120731
  Receipt Date: 20111104
  Transmission Date: 20120928
  Serious: No
  Sender: FDA-Public Use
  Company Number: US-ASTRAZENECA-2010SE21215

PATIENT
  Age: 50 Year
  Sex: Male
  Weight: 99.8 kg

DRUGS (32)
  1. SEROQUEL [Suspect]
     Route: 048
  2. SEROQUEL [Suspect]
     Route: 048
  3. PROZAC [Concomitant]
     Indication: DEPRESSION
     Dates: start: 20050613
  4. SEROQUEL [Suspect]
     Route: 048
  5. SEROQUEL [Suspect]
     Dosage: 200 MG IN THE MORNING AND 400 MG IN THE EVENING
     Route: 048
  6. INDERAL LA [Concomitant]
     Indication: PANIC ATTACK
     Dates: start: 20050611
  7. REQUIP [Concomitant]
     Indication: RESTLESS LEGS SYNDROME
     Dates: start: 20070611
  8. SEROQUEL [Suspect]
     Dosage: 200 MG IN THE MORNING AND 400 MG IN THE EVENING
     Route: 048
  9. LITHIUM CARBONATE [Concomitant]
     Indication: BIPOLAR I DISORDER
     Dates: start: 20050613
  10. KLONOPIN [Concomitant]
     Indication: ANXIETY
     Dates: start: 20050611
  11. TOPAMAX [Concomitant]
     Dates: start: 20050611
  12. ZOLOFT [Concomitant]
     Indication: DEPRESSION
     Dates: start: 20050611
  13. SEROQUEL [Suspect]
     Indication: BIPOLAR DISORDER
     Route: 048
  14. SEROQUEL [Suspect]
     Route: 048
  15. SEROQUEL [Suspect]
     Dosage: 100 MG IN THE MORNING AND 400 MG IN THE EVENING
     Route: 048
     Dates: start: 20100513
  16. SEROQUEL [Suspect]
     Route: 048
  17. SEROQUEL [Suspect]
     Dosage: 100 MG IN THE MORNING AND 400 MG IN THE EVENING
     Route: 048
     Dates: start: 20100513
  18. SEROQUEL [Suspect]
     Route: 048
  19. SEROQUEL [Suspect]
     Dosage: IN THE MORNING 100 OR 150 MG AND AT NIGHT 300 MG INSTEAD OF 400 MG
     Route: 048
  20. PROTONIX [Concomitant]
     Indication: GASTROOESOPHAGEAL REFLUX DISEASE
     Dates: start: 20080613
  21. TRAZODONE HCL [Concomitant]
     Indication: SEDATIVE THERAPY
     Dates: start: 20050611
  22. XANAX [Concomitant]
     Indication: PANIC ATTACK
     Dates: start: 20060611
  23. SEROQUEL [Suspect]
     Dosage: 100 MG IN THE MORNING AND 400 MG IN THE EVENING
     Route: 048
     Dates: end: 20100428
  24. SEROQUEL [Suspect]
     Dosage: IN THE MORNING 100 OR 150 MG AND AT NIGHT 300 MG INSTEAD OF 400 MG
     Route: 048
  25. SEROQUEL [Suspect]
     Dosage: IN THE MORNING 100 OR 150 MG AND AT NIGHT 300 MG INSTEAD OF 400 MG
     Route: 048
  26. SEROQUEL [Suspect]
     Indication: ANXIETY
     Route: 048
  27. SEROQUEL [Suspect]
     Dosage: 100 MG IN THE MORNING AND 400 MG IN THE EVENING
     Route: 048
     Dates: end: 20100428
  28. SEROQUEL [Suspect]
     Dosage: 100 MG IN THE MORNING AND 400 MG IN THE EVENING
     Route: 048
     Dates: start: 20100513
  29. NEURONTIN [Concomitant]
     Dates: start: 20050611
  30. SEROQUEL [Suspect]
     Indication: AGITATION
     Route: 048
  31. SEROQUEL [Suspect]
     Dosage: 100 MG IN THE MORNING AND 400 MG IN THE EVENING
     Route: 048
     Dates: end: 20100428
  32. SEROQUEL [Suspect]
     Dosage: 200 MG IN THE MORNING AND 400 MG IN THE EVENING
     Route: 048

REACTIONS (8)
  - DRUG DOSE OMISSION [None]
  - MENTAL DISORDER [None]
  - CONFUSIONAL STATE [None]
  - TREMOR [None]
  - DRUG WITHDRAWAL SYNDROME [None]
  - NERVOUSNESS [None]
  - POOR QUALITY SLEEP [None]
  - INCORRECT DOSE ADMINISTERED [None]
